FAERS Safety Report 8725589 (Version 4)
Quarter: 2013Q3

REPORT INFORMATION
  Report Type: Report from Study
  Country: GB (occurrence: GB)
  Receive Date: 20120815
  Receipt Date: 20130702
  Transmission Date: 20140515
  Serious: Yes (Other)
  Sender: FDA-Public Use
  Company Number: GB-JNJFOC-20120805246

PATIENT
  Age: 62 Year
  Sex: Male
  Weight: 77 kg

DRUGS (5)
  1. STELARA [Suspect]
     Indication: PSORIASIS
     Route: 058
     Dates: start: 20100219, end: 20100409
  2. METHOTREXATE [Concomitant]
     Route: 065
     Dates: start: 20080101, end: 20100819
  3. CYCLOSPORIN [Concomitant]
     Route: 065
     Dates: start: 20100608, end: 20101015
  4. CYCLOSPORIN [Concomitant]
     Route: 065
     Dates: start: 20101015, end: 20120508
  5. FUMARIC ACID [Concomitant]
     Route: 065
     Dates: start: 20100915, end: 20120202

REACTIONS (3)
  - Squamous cell carcinoma [Recovered/Resolved]
  - Basal cell carcinoma [Recovered/Resolved]
  - Actinic keratosis [Recovered/Resolved]
